APPROVED DRUG PRODUCT: AEROSPAN HFA
Active Ingredient: FLUNISOLIDE
Strength: 0.078MG/INH
Dosage Form/Route: AEROSOL, METERED;INHALATION
Application: N021247 | Product #001
Applicant: PHARMOBEDIENT CONSULTING LLC
Approved: Jan 27, 2006 | RLD: Yes | RS: No | Type: DISCN